FAERS Safety Report 5830462-4 (Version None)
Quarter: 2008Q3

REPORT INFORMATION
  Report Type: 
  Country: None (occurrence: None)
  Receive Date: 20080801
  Receipt Date: 20080111
  Transmission Date: 20090109
  Serious: Yes (Life-Threatening, Hospitalization)
  Sender: FDA-Public Use
  Company Number: US-BRISTOL-MYERS SQUIBB COMPANY-13087465

PATIENT
  Age: 63 Year
  Sex: Male
  Weight: 89 kg

DRUGS (22)
  1. COUMADIN [Suspect]
     Indication: THROMBOSIS PROPHYLAXIS
     Dates: start: 20001101, end: 20011001
  2. VIOXX [Suspect]
     Indication: ARTHRITIS
     Dosage: 12.5 MG DAILY; JUN-1999 TO MAR-2000, 25 MG DAILY; MAR-2000 TO SEP-2004
     Route: 048
     Dates: start: 19990601, end: 20040901
  3. VIOXX [Suspect]
     Indication: OSTEOARTHRITIS
     Dosage: 12.5 MG DAILY; JUN-1999 TO MAR-2000, 25 MG DAILY; MAR-2000 TO SEP-2004
     Route: 048
     Dates: start: 19990601, end: 20040901
  4. LISINOPRIL [Suspect]
  5. ZOCOR [Suspect]
  6. ALLEGRA [Concomitant]
  7. CARDURA [Concomitant]
     Dates: start: 19990811, end: 20000416
  8. PREVACID [Concomitant]
  9. ASPIRIN [Concomitant]
  10. PLAVIX [Concomitant]
  11. PRILOSEC [Concomitant]
  12. LIPITOR [Concomitant]
  13. ATENOLOL [Concomitant]
  14. FLOMAX [Concomitant]
  15. TEQUIN [Concomitant]
  16. CLARITIN [Concomitant]
  17. FAMOTIDINE [Concomitant]
  18. MOBIC [Concomitant]
  19. NASONEX [Concomitant]
  20. PEPCID [Concomitant]
  21. AMPICILLIN [Concomitant]
  22. GUAIFENESIN [Concomitant]

REACTIONS (1)
  - GASTROINTESTINAL HAEMORRHAGE [None]
